FAERS Safety Report 11589404 (Version 2)
Quarter: 2015Q4

REPORT INFORMATION
  Report Type: Report from Study
  Country: US (occurrence: US)
  Receive Date: 20151002
  Receipt Date: 20151007
  Transmission Date: 20160304
  Serious: Yes (Death, Life-Threatening, Hospitalization, Other)
  Sender: FDA-Public Use
  Company Number: US-GILEAD-2015-0175026

PATIENT
  Age: 64 Year
  Sex: Male

DRUGS (22)
  1. AMBRISENTAN [Suspect]
     Active Substance: AMBRISENTAN
     Indication: PULMONARY ARTERIAL HYPERTENSION
     Dosage: 10 MG, QD
     Route: 065
     Dates: start: 20130611, end: 20150923
  2. REMODULIN [Suspect]
     Active Substance: TREPROSTINIL
     Indication: PRODUCT USED FOR UNKNOWN INDICATION
     Route: 065
  3. CHOLESTYRAMINE. [Concomitant]
     Active Substance: CHOLESTYRAMINE
  4. ANDRODERM [Concomitant]
     Active Substance: TESTOSTERONE
  5. PREDNISOLONE. [Concomitant]
     Active Substance: PREDNISOLONE
  6. RESTORIL [Concomitant]
     Active Substance: TEMAZEPAM
  7. NEXIUM [Concomitant]
     Active Substance: ESOMEPRAZOLE MAGNESIUM
  8. VIAGRA [Concomitant]
     Active Substance: SILDENAFIL CITRATE
  9. GABAPENTIN. [Concomitant]
     Active Substance: GABAPENTIN
  10. TRAZODONE [Concomitant]
     Active Substance: TRAZODONE HYDROCHLORIDE
  11. FLUTICASONE [Concomitant]
     Active Substance: FLUTICASONE\FLUTICASONE PROPIONATE
  12. VITAMINS                           /00067501/ [Concomitant]
     Active Substance: VITAMINS
  13. COREG [Concomitant]
     Active Substance: CARVEDILOL
  14. TRICOR                             /00090101/ [Concomitant]
     Active Substance: ADENOSINE
  15. EFFEXOR [Concomitant]
     Active Substance: VENLAFAXINE HYDROCHLORIDE
  16. RENVELA [Concomitant]
     Active Substance: SEVELAMER CARBONATE
  17. FLOMAX [Concomitant]
     Active Substance: TAMSULOSIN HYDROCHLORIDE
  18. CRESTOR [Concomitant]
     Active Substance: ROSUVASTATIN CALCIUM
  19. ALLOPURINOL. [Concomitant]
     Active Substance: ALLOPURINOL
  20. PRANDIN                            /00882701/ [Concomitant]
     Active Substance: DEFLAZACORT
  21. PREDNISONE. [Concomitant]
     Active Substance: PREDNISONE
  22. LANOXIN [Concomitant]
     Active Substance: DIGOXIN

REACTIONS (2)
  - Pneumonia [Not Recovered/Not Resolved]
  - Aspiration [Fatal]
